FAERS Safety Report 6773910-8 (Version None)
Quarter: 2010Q2

REPORT INFORMATION
  Report Type: 
  Country: None (occurrence: None)
  Receive Date: 20100615
  Receipt Date: 20100615
  Transmission Date: 20101027
  Serious: Yes (Hospitalization)
  Sender: FDA-Public Use
  Company Number: None

PATIENT
  Sex: Male

DRUGS (2)
  1. OXALIPLATIN [Suspect]
     Indication: COLORECTAL CANCER
     Dosage: 149 MG X 1 IV
     Route: 042
     Dates: start: 20100608
  2. FLUOROURACIL [Suspect]
     Indication: COLORECTAL CANCER
     Dosage: 700 MG X 1 IV
     Route: 042
     Dates: start: 20100608

REACTIONS (2)
  - ABDOMINAL PAIN [None]
  - RENAL FAILURE [None]
